FAERS Safety Report 4517691-7 (Version None)
Quarter: 2004Q4

REPORT INFORMATION
  Report Type: 
  Country: None (occurrence: None)
  Receive Date: 20041201
  Receipt Date: 20041201
  Transmission Date: 20050328
  Serious: No
  Sender: FDA-Public Use
  Company Number: None

PATIENT
  Age: 57 Year
  Sex: Male
  Weight: 122.0176 kg

DRUGS (6)
  1. WARFARIN 7MG (5+2) PO DAY [Suspect]
     Indication: ATRIAL FIBRILLATION
     Dosage: (5+2) PO DAY
     Route: 048
  2. CLINDAMYCIN 300 MG [Suspect]
     Indication: PROPHYLAXIS
     Dosage: 2 TABS PO BID
     Route: 048
     Dates: start: 20041101, end: 20041111
  3. DIGOXIN [Concomitant]
  4. GEMFIBROZIL [Concomitant]
  5. ZETIA [Concomitant]
  6. FUROSEMIDE [Concomitant]

REACTIONS (1)
  - INTERNATIONAL NORMALISED RATIO DECREASED [None]
